FAERS Safety Report 6473461-4 (Version None)
Quarter: 2009Q4

REPORT INFORMATION
  Report Type: 
  Country: None (occurrence: None)
  Receive Date: 20091204
  Receipt Date: 20081112
  Transmission Date: 20100525
  Serious: Yes (Other)
  Sender: FDA-Public Use
  Company Number: IT-ELI_LILLY_AND_COMPANY-IT200811003223

PATIENT
  Age: 66 Year
  Sex: Male

DRUGS (5)
  1. XIGRIS [Suspect]
     Indication: SEPTIC SHOCK
     Dosage: UNK, UNKNOWN
     Route: 065
  2. NOREPINEPHRINE BITARTRATE [Concomitant]
     Dosage: UNK, UNKNOWN
     Route: 065
  3. ANTIBIOTICS [Concomitant]
     Dosage: UNK, UNKNOWN
     Route: 065
  4. IMMUNOSUPPRESSIVE AGENTS [Concomitant]
     Dosage: UNK, UNKNOWN
     Route: 065
  5. CORTICOSTEROID NOS [Concomitant]
     Dosage: UNK, UNKNOWN
     Route: 065

REACTIONS (5)
  - CATHETER SITE HAEMORRHAGE [None]
  - GASTROINTESTINAL HAEMORRHAGE [None]
  - POST PROCEDURAL HAEMORRHAGE [None]
  - RENAL FAILURE [None]
  - RESPIRATORY FAILURE [None]
